FAERS Safety Report 9564292 (Version 2)
Quarter: 2013Q3

REPORT INFORMATION
  Report Type: Spontaneous
  Country: US (occurrence: US)
  Receive Date: 20130930
  Receipt Date: 20130930
  Transmission Date: 20140515
  Serious: Yes (Other)
  Sender: FDA-Public Use
  Company Number: US-BIOGENIDEC-2013BI065490

PATIENT
  Age: 57 Year
  Sex: Female
  Weight: 111 kg

DRUGS (11)
  1. AVONEX [Suspect]
     Indication: MULTIPLE SCLEROSIS
     Route: 030
     Dates: start: 19990813, end: 200308
  2. AVONEX [Suspect]
     Indication: MULTIPLE SCLEROSIS
     Route: 030
     Dates: start: 200308, end: 200708
  3. AVONEX [Suspect]
     Indication: MULTIPLE SCLEROSIS
     Route: 030
     Dates: start: 20121106, end: 20121205
  4. BOTOX [Concomitant]
  5. ZANAFLEX [Concomitant]
  6. CLONAZEPAM [Concomitant]
     Route: 048
  7. TRILEPTAL [Concomitant]
     Indication: TRIGEMINAL NEURALGIA
  8. SELENIUM SULFIDE [Concomitant]
  9. KETOCONAZOLE [Concomitant]
  10. FLONASE [Concomitant]
  11. HYDROCORTISONE [Concomitant]

REACTIONS (5)
  - Jugular vein thrombosis [Unknown]
  - Embolism venous [Unknown]
  - Muscle spasticity [Unknown]
  - Multiple sclerosis [Recovered/Resolved]
  - Asthenia [Unknown]
